FAERS Safety Report 13400730 (Version 2)
Quarter: 2017Q2

REPORT INFORMATION
  Report Type: Spontaneous
  Country: JP (occurrence: JP)
  Receive Date: 20170404
  Receipt Date: 20170425
  Transmission Date: 20170830
  Serious: Yes (Hospitalization)
  Sender: FDA-Public Use
  Company Number: PHJP2017JP010934

PATIENT
  Age: 80 Year
  Sex: Female

DRUGS (1)
  1. EXELON PATCH [Suspect]
     Active Substance: RIVASTIGMINE
     Indication: DEMENTIA ALZHEIMER^S TYPE
     Dosage: 4.6 MG/24 H (PATCH 5 CM2, 9 MG OF RIVASTIGMINE BASE)
     Route: 062
     Dates: start: 20161030

REACTIONS (3)
  - Blood cholinesterase decreased [Unknown]
  - Pneumonia [Recovered/Resolved]
  - Cough [Unknown]

NARRATIVE: CASE EVENT DATE: 20170223
